FAERS Safety Report 22071305 (Version 1)
Quarter: 2023Q1

REPORT INFORMATION
  Report Type: Spontaneous
  Country: US (occurrence: None)
  Receive Date: 20230307
  Receipt Date: 20230307
  Transmission Date: 20230417
  Serious: Yes (Death)
  Sender: FDA-Public Use
  Company Number: None

PATIENT
  Age: 75 Year
  Sex: Male
  Weight: 68.95 kg

DRUGS (19)
  1. INLYTA [Suspect]
     Active Substance: AXITINIB
     Indication: Renal cancer
     Dosage: FREQUENCY : EVERY 12 HOURS;?
     Route: 048
     Dates: start: 20230218, end: 20230302
  2. CABOMETYX [Concomitant]
     Active Substance: CABOZANTINIB S-MALATE
  3. CARAFATE [Concomitant]
     Active Substance: SUCRALFATE
  4. MINERALS\VITAMINS [Concomitant]
     Active Substance: MINERALS\VITAMINS
  5. DONEPEZIL [Concomitant]
     Active Substance: DONEPEZIL
  6. ELIQUIS [Concomitant]
     Active Substance: APIXABAN
  7. K PHOS NEUTRAL [Concomitant]
     Active Substance: POTASSIUM PHOSPHATE, MONOBASIC\SODIUM PHOSPHATE, DIBASIC, ANHYDROUS\SODIUM PHOSPHATE, MONOBASIC, MON
  8. LEVOTHYROXINE [Concomitant]
     Active Substance: LEVOTHYROXINE
  9. LIDOCAINE\PRILOCAINE [Concomitant]
     Active Substance: LIDOCAINE\PRILOCAINE
  10. LOSARTAN [Concomitant]
     Active Substance: LOSARTAN
  11. MEGESTROL [Concomitant]
     Active Substance: MEGESTROL
  12. MORPHINE SULFATE [Concomitant]
     Active Substance: MORPHINE SULFATE
  13. OMEPRAZOLE [Concomitant]
     Active Substance: OMEPRAZOLE
  14. ONDANSETRON [Concomitant]
     Active Substance: ONDANSETRON
  15. OXYCODONE [Concomitant]
     Active Substance: OXYCODONE
  16. REMERON [Concomitant]
     Active Substance: MIRTAZAPINE
  17. SIMVASTATIN [Concomitant]
     Active Substance: SIMVASTATIN
  18. TAMSULOSIN [Concomitant]
     Active Substance: TAMSULOSIN
  19. VITAMIN D3 [Concomitant]
     Active Substance: CHOLECALCIFEROL

REACTIONS (2)
  - Pulmonary oedema [None]
  - Dyspnoea [None]

NARRATIVE: CASE EVENT DATE: 20230302
